FAERS Safety Report 6194619-8 (Version None)
Quarter: 2009Q2

REPORT INFORMATION
  Report Type: 
  Country: None (occurrence: None)
  Receive Date: 20090519
  Receipt Date: 20070723
  Transmission Date: 20091009
  Serious: Yes (Hospitalization)
  Sender: FDA-Public Use
  Company Number: US-ASTRAZENECA-2007UW01719

PATIENT
  Age: 13965 Day
  Sex: Male
  Weight: 120 kg

DRUGS (40)
  1. SEROQUEL [Suspect]
     Indication: BIPOLAR DISORDER
     Dosage: 50MG-300MG
     Route: 048
     Dates: start: 20001022
  2. SEROQUEL [Suspect]
     Indication: DEPRESSION
     Dosage: 50MG-300MG
     Route: 048
     Dates: start: 20001022
  3. SEROQUEL [Suspect]
     Indication: ABNORMAL SLEEP-RELATED EVENT
     Dosage: 50MG-300MG
     Route: 048
     Dates: start: 20001022
  4. SEROQUEL [Suspect]
     Indication: AGITATION
     Dosage: 50MG-300MG
     Route: 048
     Dates: start: 20001022
  5. SEROQUEL [Suspect]
     Indication: MOOD SWINGS
     Dosage: 50MG-300MG
     Route: 048
     Dates: start: 20001022
  6. SEROQUEL [Suspect]
     Indication: PSYCHOTIC DISORDER
     Dosage: 50MG-300MG
     Route: 048
     Dates: start: 20001022
  7. SEROQUEL [Suspect]
     Route: 048
     Dates: start: 20001231
  8. SEROQUEL [Suspect]
     Route: 048
     Dates: start: 20001231
  9. SEROQUEL [Suspect]
     Route: 048
     Dates: start: 20001231
  10. SEROQUEL [Suspect]
     Route: 048
     Dates: start: 20001231
  11. SEROQUEL [Suspect]
     Route: 048
     Dates: start: 20001231
  12. SEROQUEL [Suspect]
     Route: 048
     Dates: start: 20001231
  13. SEROQUEL [Suspect]
     Route: 048
  14. SEROQUEL [Suspect]
     Route: 048
  15. SEROQUEL [Suspect]
     Route: 048
  16. SEROQUEL [Suspect]
     Route: 048
  17. SEROQUEL [Suspect]
     Route: 048
  18. SEROQUEL [Suspect]
     Route: 048
  19. DEPAKOTE [Concomitant]
     Route: 048
  20. LANTUS [Concomitant]
     Route: 058
  21. GLUCOPHAGE [Concomitant]
     Route: 048
  22. MOTRIN [Concomitant]
     Route: 048
  23. KLONOPIN [Concomitant]
     Route: 065
  24. NEURONTIN [Concomitant]
     Dosage: 300-800MG
     Route: 048
  25. NITROGLYCERIN [Concomitant]
     Route: 060
  26. HUMULIN R [Concomitant]
     Route: 065
  27. TENORMIN [Concomitant]
     Route: 065
  28. ASPIRIN [Concomitant]
     Route: 048
  29. LESCOL [Concomitant]
     Route: 065
  30. PROVENTIL [Concomitant]
     Route: 065
  31. SERZONE [Concomitant]
     Route: 065
  32. LOTENSIN [Concomitant]
     Route: 065
  33. PREDNISONE [Concomitant]
     Dosage: 3 TAB TO 1 TAB (TAPPERING PER DAY)
     Route: 065
  34. HYDROCHLOROTHIAZIDE [Concomitant]
     Route: 065
  35. LIPITOR [Concomitant]
     Route: 065
  36. EFFEXOR XR [Concomitant]
     Dosage: 75-150MG
     Route: 048
  37. WELLBUTRIN [Concomitant]
     Route: 065
  38. TOPAMAX [Concomitant]
     Route: 065
  39. CYMBALTA [Concomitant]
     Dosage: 30-100MG
     Route: 065
  40. GLYBURIDE [Concomitant]
     Route: 048

REACTIONS (8)
  - BACK PAIN [None]
  - BRONCHITIS [None]
  - DIABETES MELLITUS [None]
  - MUSCULOSKELETAL CHEST PAIN [None]
  - OVERDOSE [None]
  - PLEURISY [None]
  - SUICIDAL IDEATION [None]
  - TYPE 2 DIABETES MELLITUS [None]
